FAERS Safety Report 21211864 (Version 1)
Quarter: 2022Q3

REPORT INFORMATION
  Report Type: Spontaneous
  Country: HU (occurrence: HU)
  Receive Date: 20220815
  Receipt Date: 20220815
  Transmission Date: 20221027
  Serious: Yes (Life-Threatening, Other)
  Sender: FDA-Public Use
  Company Number: HU-PFIZER INC-PV202200037891

PATIENT
  Age: 45 Year
  Sex: Female

DRUGS (5)
  1. SOLU-MEDROL [Suspect]
     Active Substance: METHYLPREDNISOLONE SODIUM SUCCINATE
     Indication: Histiocytic necrotising lymphadenitis
     Dosage: 125 MG, 2X/DAY
  2. AUGMENTIN [Concomitant]
     Active Substance: AMOXICILLIN\CLAVULANATE POTASSIUM
     Dosage: 1.2 G, 3X/DAY
     Route: 042
  3. METRONIDAZOLE [Concomitant]
     Active Substance: METRONIDAZOLE
     Indication: Bacterial infection
     Dosage: 100 MG, 2X/DAY
     Route: 042
  4. MICRONEFRIN [EPINEPHRINE HYDROCHLORIDE] [Concomitant]
     Dosage: 1 ML
  5. SODIUM CHLORIDE [Concomitant]
     Active Substance: SODIUM CHLORIDE
     Dosage: UNK, 3X/DAY, DILUTED WITH 5 ML OF 0.9%

REACTIONS (1)
  - Off label use [Unknown]
